FAERS Safety Report 15575716 (Version 9)
Quarter: 2020Q3

REPORT INFORMATION
  Report Type: Report from Study
  Country: US (occurrence: US)
  Receive Date: 20181101
  Receipt Date: 20200513
  Transmission Date: 20201104
  Serious: Yes (Death, Hospitalization)
  Sender: FDA-Public Use
  Company Number: US-ROCHE-2206311

PATIENT
  Age: 18 Year
  Sex: Male
  Weight: 50.7 kg

DRUGS (66)
  1. ATEZOLIZUMAB. [Suspect]
     Active Substance: ATEZOLIZUMAB
     Indication: B-CELL LYMPHOMA
     Dosage: DATE OF MOST RECENT DOSE (1200 MG) OF ATEZOLIZUMAB PRIOR TO AE ONSET: 19/OCT/2018 AT 21:57
     Route: 042
     Dates: start: 20181019
  2. ACYCLOVIR [ACICLOVIR] [Concomitant]
     Active Substance: ACYCLOVIR
     Indication: INFECTION PROPHYLAXIS
     Route: 048
     Dates: start: 20180907
  3. BENADRYL [Concomitant]
     Active Substance: DIPHENHYDRAMINE HYDROCHLORIDE
     Indication: PRURITUS
     Route: 048
     Dates: start: 20180914
  4. LEXAPRO [Concomitant]
     Active Substance: ESCITALOPRAM OXALATE
     Route: 048
     Dates: start: 20181105
  5. ATARAX [Concomitant]
     Active Substance: HYDROXYZINE HYDROCHLORIDE
     Indication: PREMEDICATION
     Route: 048
     Dates: start: 20181018, end: 20181024
  6. TYLENOL [Concomitant]
     Active Substance: ACETAMINOPHEN
     Indication: PREMEDICATION
     Route: 048
     Dates: start: 20181018, end: 20181018
  7. TYLENOL [Concomitant]
     Active Substance: ACETAMINOPHEN
     Indication: PAIN
     Route: 048
     Dates: start: 20181019
  8. NORCO [Concomitant]
     Active Substance: ACETAMINOPHEN\HYDROCODONE BITARTRATE
     Indication: PAIN
     Dosage: DOSE: 1
     Route: 048
     Dates: start: 20181012
  9. CLONAZEPAM. [Concomitant]
     Active Substance: CLONAZEPAM
     Indication: INSOMNIA
     Route: 048
     Dates: start: 20181018, end: 20181102
  10. ATIVAN [Concomitant]
     Active Substance: LORAZEPAM
     Indication: NAUSEA
     Route: 058
     Dates: start: 20181028, end: 20181110
  11. ATIVAN [Concomitant]
     Active Substance: LORAZEPAM
     Indication: VOMITING
  12. ZOFRAN [Concomitant]
     Active Substance: ONDANSETRON HYDROCHLORIDE
     Indication: NAUSEA
     Route: 042
     Dates: start: 20181022, end: 20181028
  13. ZOFRAN [Concomitant]
     Active Substance: ONDANSETRON HYDROCHLORIDE
     Indication: VOMITING
     Route: 042
     Dates: start: 20181028, end: 20181102
  14. MAGNESIUM SULFATE. [Concomitant]
     Active Substance: MAGNESIUM SULFATE
     Indication: BLOOD MAGNESIUM DECREASED
     Route: 042
     Dates: start: 20181109, end: 20181109
  15. BENADRYL [Concomitant]
     Active Substance: DIPHENHYDRAMINE HYDROCHLORIDE
     Indication: PREMEDICATION
     Route: 042
     Dates: start: 20180821
  16. TYLENOL [Concomitant]
     Active Substance: ACETAMINOPHEN
     Route: 048
     Dates: start: 20181106
  17. DEXTROMETHORPHAN [Concomitant]
     Active Substance: DEXTROMETHORPHAN
     Indication: COUGH
     Route: 048
     Dates: start: 20181019, end: 20181022
  18. DECADRON [Concomitant]
     Active Substance: DEXAMETHASONE
     Indication: PREMEDICATION
     Route: 042
     Dates: start: 20181019, end: 20181019
  19. GASTROCROM [Concomitant]
     Active Substance: CROMOLYN SODIUM
     Indication: INFLAMMATION
     Route: 042
     Dates: start: 20181012
  20. DIPRIVAN [Concomitant]
     Active Substance: PROPOFOL
     Route: 042
     Dates: start: 20181012, end: 20181012
  21. DIPRIVAN [Concomitant]
     Active Substance: PROPOFOL
     Route: 042
     Dates: start: 20181012, end: 20181012
  22. NALTREXONE [Concomitant]
     Active Substance: NALTREXONE
     Indication: PRURITUS
     Route: 048
     Dates: start: 20181012, end: 20181018
  23. ATIVAN [Concomitant]
     Active Substance: LORAZEPAM
     Indication: ANXIETY
     Route: 058
     Dates: start: 20181021, end: 20181021
  24. ZYRTEC [Concomitant]
     Active Substance: CETIRIZINE HYDROCHLORIDE
     Indication: PRURITUS
     Route: 048
     Dates: start: 20181020, end: 20181102
  25. NARCAN [Concomitant]
     Active Substance: NALOXONE HYDROCHLORIDE
     Indication: PRURITUS
     Route: 042
     Dates: start: 20181021, end: 20181030
  26. CALAMINE [Concomitant]
     Active Substance: CALAMINE\FERRIC OXIDE RED\ZINC OXIDE
     Indication: DRY SKIN
     Dosage: OTHER
     Route: 061
     Dates: start: 20181023
  27. ALBUMIN HUMAN [Concomitant]
     Active Substance: ALBUMIN HUMAN
     Indication: OEDEMA
     Route: 042
     Dates: start: 20181023
  28. PREDNISONE. [Concomitant]
     Active Substance: PREDNISONE
     Indication: INFLAMMATION
     Route: 048
     Dates: start: 20181025, end: 20181101
  29. BENZOCAINE/MENTHOL [Concomitant]
     Indication: OROPHARYNGEAL PAIN
     Dosage: DOSE: 1
     Route: 048
     Dates: start: 20181027, end: 20181027
  30. CROMOLYN [CROMOGLICIC ACID] [Concomitant]
     Active Substance: CROMOLYN
     Indication: PRURITUS
     Route: 048
     Dates: start: 20181020, end: 20181102
  31. DILAUDID [Concomitant]
     Active Substance: HYDROMORPHONE HYDROCHLORIDE
     Route: 042
     Dates: start: 20181024, end: 20181025
  32. DIFLUCAN [Concomitant]
     Active Substance: FLUCONAZOLE
     Route: 048
     Dates: start: 20181024, end: 20181102
  33. LEVOPHED [Concomitant]
     Active Substance: NOREPINEPHRINE BITARTRATE
     Indication: HYPOTENSION
     Route: 042
     Dates: start: 20181105, end: 20181108
  34. FENTANYL CITRATE. [Concomitant]
     Active Substance: FENTANYL CITRATE
     Indication: PAIN
     Route: 042
     Dates: start: 20180907, end: 20181011
  35. KETALAR [Concomitant]
     Active Substance: KETAMINE HYDROCHLORIDE
     Route: 042
     Dates: start: 20181012, end: 20181012
  36. MOSUNETUZUMAB. [Suspect]
     Active Substance: MOSUNETUZUMAB
     Indication: B-CELL LYMPHOMA
     Dosage: DATE OF MOST RECENT DOSE (4.2 MG) OF BTCT4465A PRIOR TO AE ONSET: 19/OCT/2018 AT 16:07
     Route: 042
     Dates: start: 20180824
  37. MOSUNETUZUMAB. [Suspect]
     Active Substance: MOSUNETUZUMAB
     Indication: CHRONIC LYMPHOCYTIC LEUKAEMIA
  38. ATEZOLIZUMAB. [Suspect]
     Active Substance: ATEZOLIZUMAB
     Indication: CHRONIC LYMPHOCYTIC LEUKAEMIA
  39. MYCAMINE [Concomitant]
     Active Substance: MICAFUNGIN SODIUM
     Route: 042
     Dates: start: 20181020, end: 20181023
  40. HYCODAN [HYDROCODONE BITARTRATE] [Concomitant]
     Active Substance: HYDROCODONE BITARTRATE
     Indication: COUGH
     Route: 048
     Dates: start: 20181020, end: 20181020
  41. BENADRYL [Concomitant]
     Active Substance: DIPHENHYDRAMINE HYDROCHLORIDE
     Indication: NAUSEA
     Route: 048
     Dates: start: 20181024, end: 20181027
  42. LEXAPRO [Concomitant]
     Active Substance: ESCITALOPRAM OXALATE
     Indication: ANXIETY
     Route: 048
     Dates: start: 20180705
  43. KEPPRA [Concomitant]
     Active Substance: LEVETIRACETAM
     Indication: INSOMNIA
     Route: 048
     Dates: start: 20181018, end: 20181102
  44. MERREM [Concomitant]
     Active Substance: MEROPENEM
     Indication: PYREXIA
     Dosage: DOSE : 100 (UNIT NOT REPORTED)
     Route: 042
     Dates: start: 20181019, end: 20181026
  45. XOPENEX [Concomitant]
     Active Substance: LEVALBUTEROL HYDROCHLORIDE
     Route: 050
     Dates: start: 20181026, end: 20181026
  46. QUESTRAN [Concomitant]
     Active Substance: CHOLESTYRAMINE
     Indication: PRURITUS
     Route: 048
     Dates: start: 20181023
  47. LASIX [Concomitant]
     Active Substance: FUROSEMIDE
     Indication: OEDEMA
     Route: 042
     Dates: start: 20181023, end: 20181024
  48. MORPHINE [Concomitant]
     Active Substance: MORPHINE
     Indication: PAIN
     Route: 042
     Dates: start: 20181108, end: 20181108
  49. ATARAX [Concomitant]
     Active Substance: HYDROXYZINE HYDROCHLORIDE
     Indication: PRURITUS
     Route: 048
     Dates: start: 20180821
  50. COLACE [Concomitant]
     Active Substance: DOCUSATE SODIUM
     Indication: CONSTIPATION
     Route: 048
     Dates: start: 20181019, end: 20181102
  51. DILAUDID [Concomitant]
     Active Substance: HYDROMORPHONE HYDROCHLORIDE
     Indication: PAIN
     Route: 042
     Dates: start: 20181023, end: 20181024
  52. SENNA [Concomitant]
     Active Substance: SENNA LEAF\SENNOSIDES\SENNOSIDES A AND B
     Indication: CONSTIPATION
     Route: 048
     Dates: start: 20181028, end: 20181031
  53. PREDNISONE. [Concomitant]
     Active Substance: PREDNISONE
     Route: 048
     Dates: start: 20181101, end: 20181102
  54. PREDNISONE. [Concomitant]
     Active Substance: PREDNISONE
     Route: 048
     Dates: start: 20181028, end: 20181028
  55. ATARAX [Concomitant]
     Active Substance: HYDROXYZINE HYDROCHLORIDE
     Route: 048
     Dates: start: 20181024
  56. MIRALAX [Concomitant]
     Active Substance: POLYETHYLENE GLYCOL 3350
     Indication: CONSTIPATION PROPHYLAXIS
     Route: 048
     Dates: start: 20180705
  57. ALLOPURINOL. [Concomitant]
     Active Substance: ALLOPURINOL
     Indication: PROPHYLAXIS
     Route: 048
     Dates: start: 20180822
  58. PEPCID [Concomitant]
     Active Substance: FAMOTIDINE
     Indication: PREMEDICATION
     Route: 048
     Dates: start: 20181018
  59. NALTREXONE [Concomitant]
     Active Substance: NALTREXONE
     Route: 048
     Dates: start: 20181018
  60. AMBIEN [Concomitant]
     Active Substance: ZOLPIDEM TARTRATE
     Indication: INSOMNIA
     Route: 048
     Dates: start: 20181018
  61. NALOXONE [Concomitant]
     Active Substance: NALOXONE
     Indication: PRURITUS
     Route: 042
     Dates: start: 20181019, end: 20181020
  62. DEXTROMETHORPHAN [Concomitant]
     Active Substance: DEXTROMETHORPHAN
     Route: 048
     Dates: start: 20181026, end: 20181030
  63. XOPENEX [Concomitant]
     Active Substance: LEVALBUTEROL HYDROCHLORIDE
     Indication: DYSPNOEA
     Route: 050
     Dates: start: 20181020
  64. XOPENEX [Concomitant]
     Active Substance: LEVALBUTEROL HYDROCHLORIDE
     Route: 050
     Dates: start: 20181028, end: 20181102
  65. SCOPOLAMINE [HYOSCINE] [Concomitant]
     Active Substance: SCOPOLAMINE
     Indication: NAUSEA
     Dosage: DOSE: 1 OTHER
     Route: 061
     Dates: start: 20181024, end: 20181027
  66. HYDROCORTISONE SODIUM SUCCINATE [Concomitant]
     Active Substance: HYDROCORTISONE SODIUM SUCCINATE
     Indication: INFLAMMATION
     Route: 042
     Dates: start: 20181105

REACTIONS (2)
  - Sepsis [Recovered/Resolved]
  - Malignant neoplasm progression [Fatal]

NARRATIVE: CASE EVENT DATE: 20181020
